FAERS Safety Report 24587712 (Version 2)
Quarter: 2024Q4

REPORT INFORMATION
  Report Type: Spontaneous
  Country: CA (occurrence: CA)
  Receive Date: 20241107
  Receipt Date: 20241113
  Transmission Date: 20250114
  Serious: Yes (Other)
  Sender: BAXTER
  Company Number: CA-BAXTER-2024BAX026762

PATIENT
  Sex: Female

DRUGS (1)
  1. SODIUM CHLORIDE [Suspect]
     Active Substance: SODIUM CHLORIDE
     Dosage: (0.9% SODIUM CHLORIDE INJECTION USP, 500 ML) AT AN UNSPECIFIED DOSE AND FREQUENCY
     Route: 065

REACTIONS (3)
  - Sepsis [Unknown]
  - Product leakage [Unknown]
  - Liquid product physical issue [Unknown]
